FAERS Safety Report 20410566 (Version 2)
Quarter: 2022Q1

REPORT INFORMATION
  Report Type: Spontaneous
  Country: IT (occurrence: IT)
  Receive Date: 20220201
  Receipt Date: 20220321
  Transmission Date: 20220423
  Serious: Yes (Hospitalization, Other)
  Sender: FDA-Public Use
  Company Number: IT-002147023-NVSC2022IT004666

PATIENT
  Age: 32 Year
  Sex: Female

DRUGS (2)
  1. RITUXIMAB [Suspect]
     Active Substance: RITUXIMAB
     Indication: Relapsing-remitting multiple sclerosis
     Dosage: FIRST AND SECOND CYCLES WERE COMPLETED WITH TWO DOSES(1000MG)
  2. RITUXIMAB [Suspect]
     Active Substance: RITUXIMAB
     Dosage: SINGLE 1000-MG RITUXIMAB INFUSION WAS DONE AFTER 7 MORE MONTHS (THIRD CYCLE)

REACTIONS (2)
  - Herpes simplex encephalitis [Recovered/Resolved]
  - Off label use [Unknown]
